FAERS Safety Report 7385198-8 (Version None)
Quarter: 2011Q1

REPORT INFORMATION
  Report Type: 
  Country: None (occurrence: None)
  Receive Date: 20110330
  Receipt Date: 20110114
  Transmission Date: 20110831
  Serious: No
  Sender: FDA-Public Use
  Company Number: US-MYLANLABS-2010S1023626

PATIENT
  Age: 77 Year
  Sex: Male

DRUGS (3)
  1. FAMOTIDINE [Concomitant]
  2. NIFEDIPINE [Suspect]
     Indication: BLOOD PRESSURE INCREASED
     Route: 048
  3. HYZAAR [Concomitant]
     Dosage: 50MG/12.5MG

REACTIONS (2)
  - VISION BLURRED [None]
  - DIZZINESS [None]
